FAERS Safety Report 6838713-4 (Version None)
Quarter: 2010Q3

REPORT INFORMATION
  Report Type: 
  Country: None (occurrence: None)
  Receive Date: 20100713
  Receipt Date: 20070706
  Transmission Date: 20110219
  Serious: No
  Sender: FDA-Public Use
  Company Number: US-PFIZER INC-2007048642

PATIENT
  Weight: 54.4 kg

DRUGS (19)
  1. CHANTIX [Suspect]
     Indication: SMOKING CESSATION THERAPY
     Route: 048
     Dates: start: 20070609
  2. VITAMINS [Concomitant]
  3. LAXATIVES [Concomitant]
  4. ECHINACEA/VITAMIN C/ZINC SULFATE [Concomitant]
  5. VITAMIN D [Concomitant]
  6. OMEGA 3-6-9 [Concomitant]
  7. CALCIUM WITH VITAMIN D [Concomitant]
  8. POTASSIUM GLUCONATE TAB [Concomitant]
  9. MULTI-VITAMINS [Concomitant]
  10. EFFEXOR [Concomitant]
  11. PROVIGIL [Concomitant]
  12. DIAZEPAM [Concomitant]
  13. SOMA [Concomitant]
     Dosage: PRN
  14. FERROUS SULFATE [Concomitant]
  15. PROTONIX [Concomitant]
  16. RESTORIL [Concomitant]
     Dosage: PRN AT BEDTIME
  17. DURAGESIC-100 [Concomitant]
  18. PERCOCET [Concomitant]
     Dosage: EVERY 4-6 HOURS AS NEEDED
  19. ALL OTHER THERAPEUTIC PRODUCTS [Concomitant]

REACTIONS (3)
  - DIARRHOEA [None]
  - FLATULENCE [None]
  - NAUSEA [None]
